FAERS Safety Report 8564732-6 (Version None)
Quarter: 2012Q3

REPORT INFORMATION
  Report Type: 
  Country: None (occurrence: None)
  Receive Date: 20120723
  Receipt Date: 20120625
  Transmission Date: 20120928
  Serious: Yes (Hospitalization)
  Sender: FDA-Public Use
  Company Number: 001286355A

PATIENT
  Age: 34 Year
  Sex: Female

DRUGS (6)
  1. NEURONTIN [Concomitant]
  2. LASIX [Concomitant]
  3. CELEXA [Concomitant]
  4. OXYCODONE HCL [Concomitant]
  5. PROACTIV 30 DAY KIT [Suspect]
     Indication: ACNE
     Dosage: ONCE DERMAL
     Dates: start: 20120407
  6. SIMVASTATIN [Concomitant]

REACTIONS (6)
  - APPLICATION SITE PARAESTHESIA [None]
  - PHARYNGEAL OEDEMA [None]
  - SWELLING FACE [None]
  - SCAR [None]
  - APPLICATION SITE BURN [None]
  - DYSPNOEA [None]
